FAERS Safety Report 21283105 (Version 4)
Quarter: 2023Q1

REPORT INFORMATION
  Report Type: Report from Study
  Country: US (occurrence: US)
  Receive Date: 20220901
  Receipt Date: 20230123
  Transmission Date: 20230417
  Serious: Yes (Hospitalization, Other)
  Sender: FDA-Public Use
  Company Number: US-TAKEDA-2021TUS069632

PATIENT
  Sex: Female
  Weight: 48 kg

DRUGS (4)
  1. PONATINIB [Suspect]
     Active Substance: PONATINIB
     Indication: Chronic myeloid leukaemia
     Dosage: 45 MILLIGRAM, QD
     Route: 065
  2. PONATINIB [Suspect]
     Active Substance: PONATINIB
     Dosage: 30 MILLIGRAM, QD
     Route: 065
     Dates: start: 20221029
  3. PONATINIB [Suspect]
     Active Substance: PONATINIB
     Dosage: 700 MILLIGRAM, QD
     Route: 065
  4. PONATINIB [Suspect]
     Active Substance: PONATINIB
     Dosage: 45 MILLIGRAM, QD
     Route: 065

REACTIONS (10)
  - Appendicitis [Unknown]
  - Hepatic pain [Unknown]
  - Abdominal pain upper [Unknown]
  - Febrile neutropenia [Unknown]
  - Pain [Unknown]
  - Drug eruption [Recovering/Resolving]
  - Headache [Not Recovered/Not Resolved]
  - Hypersensitivity [Unknown]
  - Incorrect dose administered [Unknown]
  - Product dose omission issue [Unknown]
